FAERS Safety Report 24313133 (Version 1)
Quarter: 2024Q3

REPORT INFORMATION
  Report Type: Spontaneous
  Country: GB (occurrence: GB)
  Receive Date: 20240912
  Receipt Date: 20240912
  Transmission Date: 20241017
  Serious: Yes (Hospitalization, Disabling, Other)
  Sender: GLAXOSMITHKLINE
  Company Number: None

PATIENT

DRUGS (2)
  1. MALARONE [Suspect]
     Active Substance: ATOVAQUONE\PROGUANIL HYDROCHLORIDE
     Indication: Malaria prophylaxis
     Dosage: 1 DF, QD
     Route: 065
  2. SERTRALINE [Concomitant]
     Active Substance: SERTRALINE HYDROCHLORIDE
     Indication: Affective disorder
     Dosage: UNK
     Route: 065

REACTIONS (5)
  - Psychotic disorder [Recovering/Resolving]
  - Aggression [Unknown]
  - Sleep disorder [Unknown]
  - Condition aggravated [Unknown]
  - Coprolalia [Unknown]

NARRATIVE: CASE EVENT DATE: 20240810
